FAERS Safety Report 8386777-1 (Version None)
Quarter: 2012Q2

REPORT INFORMATION
  Report Type: 
  Country: None (occurrence: None)
  Receive Date: 20120525
  Receipt Date: 20120518
  Transmission Date: 20120825
  Serious: Yes (Hospitalization)
  Sender: FDA-Public Use
  Company Number: US-BAXTER-2012BAX005648

PATIENT
  Age: 58 Year
  Sex: Female

DRUGS (3)
  1. FLUDARABINE PHOSPHATE [Suspect]
     Route: 042
     Dates: start: 20120126, end: 20120323
  2. RITUXAN [Suspect]
     Route: 042
     Dates: start: 20120126, end: 20120323
  3. CYTOXAN [Suspect]
     Route: 042
     Dates: start: 20120126, end: 20120323

REACTIONS (2)
  - DEHYDRATION [None]
  - DIARRHOEA [None]
